FAERS Safety Report 25855017 (Version 1)
Quarter: 2025Q3

REPORT INFORMATION
  Report Type: Spontaneous
  Country: US (occurrence: US)
  Receive Date: 20250927
  Receipt Date: 20250927
  Transmission Date: 20251021
  Serious: No
  Sender: SANOFI AVENTIS
  Company Number: US-SA-2025SA288092

PATIENT
  Age: 5 Year
  Sex: Female

DRUGS (1)
  1. DUPIXENT [Suspect]
     Active Substance: DUPILUMAB
     Indication: Dermatitis atopic
     Dosage: 300 MG, QM
     Route: 058
     Dates: start: 20230901

REACTIONS (5)
  - Skin discolouration [Not Recovered/Not Resolved]
  - Skin exfoliation [Recovering/Resolving]
  - Rash macular [Not Recovered/Not Resolved]
  - Drug ineffective [Unknown]
  - Therapeutic response unexpected [Unknown]
